FAERS Safety Report 4909529-0 (Version None)
Quarter: 2006Q1

REPORT INFORMATION
  Report Type: 
  Country: None (occurrence: None)
  Receive Date: 20060213
  Receipt Date: 20050920
  Transmission Date: 20060701
  Serious: Yes (Death, Hospitalization, Disabling, Other)
  Sender: FDA-Public Use
  Company Number: US-MERCK-0509USA03226

PATIENT
  Age: 52 Year
  Sex: Male
  Weight: 102 kg

DRUGS (2)
  1. VIOXX [Suspect]
     Indication: MONARTHRITIS
     Route: 048
     Dates: start: 20020115, end: 20040901
  2. VIOXX [Suspect]
     Indication: ARTHRALGIA
     Route: 048
     Dates: start: 20020115, end: 20040901

REACTIONS (19)
  - ANGINA UNSTABLE [None]
  - ANXIETY [None]
  - CARDIOGENIC SHOCK [None]
  - CHEST PAIN [None]
  - COLON CANCER METASTATIC [None]
  - CONSTIPATION [None]
  - CORONARY ARTERY DISEASE [None]
  - DEATH [None]
  - DEEP VEIN THROMBOSIS [None]
  - DEPRESSION [None]
  - DIABETES MELLITUS NON-INSULIN-DEPENDENT [None]
  - EMPHYSEMA [None]
  - MYOCARDIAL INFARCTION [None]
  - NAUSEA [None]
  - PULMONARY EMBOLISM [None]
  - RESPIRATORY FAILURE [None]
  - RIGHT VENTRICULAR FAILURE [None]
  - SMALL INTESTINAL OBSTRUCTION [None]
  - VOMITING [None]
